FAERS Safety Report 8507206-0 (Version None)
Quarter: 2012Q3

REPORT INFORMATION
  Report Type: 
  Country: None (occurrence: None)
  Receive Date: 20120712
  Receipt Date: 20120703
  Transmission Date: 20120928
  Serious: Yes (Life-Threatening)
  Sender: FDA-Public Use
  Company Number: CA-FRI-1000036966

PATIENT
  Age: 34 Year
  Sex: Male
  Weight: 93 kg

DRUGS (3)
  1. RISPERDAL [Concomitant]
  2. CELEXA [Suspect]
     Dosage: 30 MG
     Route: 048
  3. WARFARIN SODIUM [Concomitant]

REACTIONS (1)
  - DEEP VEIN THROMBOSIS [None]
